FAERS Safety Report 14587229 (Version 2)
Quarter: 2018Q1

REPORT INFORMATION
  Report Type: Spontaneous
  Country: JP (occurrence: JP)
  Receive Date: 20180301
  Receipt Date: 20180307
  Transmission Date: 20180509
  Serious: Yes (Other)
  Sender: FDA-Public Use
  Company Number: JP-SHIONOGI, INC-2018000308

PATIENT
  Sex: Male

DRUGS (5)
  1. OXINORM                            /00045603/ [Suspect]
     Active Substance: OXYCODONE HYDROCHLORIDE
     Indication: CANCER PAIN
     Dosage: UNK
     Route: 048
  2. SYMPROIC [Suspect]
     Active Substance: NALDEMEDINE
     Indication: PROPHYLAXIS
     Dosage: 0.2 MG, QD
     Route: 048
     Dates: start: 20180208
  3. OXYCONTIN [Suspect]
     Active Substance: OXYCODONE HYDROCHLORIDE
     Indication: BILE DUCT CANCER
     Dosage: 10 MG, QD
     Route: 048
     Dates: start: 20180208
  4. OXYCONTIN [Suspect]
     Active Substance: OXYCODONE HYDROCHLORIDE
     Dosage: UNK
     Route: 048
  5. OXINORM                            /00045603/ [Suspect]
     Active Substance: OXYCODONE HYDROCHLORIDE
     Dosage: UNK
     Route: 048

REACTIONS (3)
  - Ileus [Not Recovered/Not Resolved]
  - Nausea [Recovered/Resolved]
  - Product prescribing issue [Unknown]
